FAERS Safety Report 5254432-2 (Version None)
Quarter: 2007Q1

REPORT INFORMATION
  Report Type: 
  Country: None (occurrence: None)
  Receive Date: 20061201
  Receipt Date: 20060924
  Transmission Date: 20070707
  Serious: Yes (Hospitalization)
  Sender: FDA-Public Use
  Company Number: 2006PV021842

PATIENT
  Age: 54 Year
  Sex: Male

DRUGS (4)
  1. BYETTA [Suspect]
     Indication: DIABETES MELLITUS NON-INSULIN-DEPENDENT
     Dosage: 5 MCG;BID;SC
     Route: 058
     Dates: start: 20060601, end: 20060827
  2. GLYBURIDE [Concomitant]
  3. ACTOS [Concomitant]
  4. METFORMIN HCL [Concomitant]

REACTIONS (5)
  - BLOOD GLUCOSE DECREASED [None]
  - FEELING JITTERY [None]
  - HYPERHIDROSIS [None]
  - NAUSEA [None]
  - VOMITING [None]
